FAERS Safety Report 4990244-2 (Version None)
Quarter: 2006Q2

REPORT INFORMATION
  Report Type: 
  Country: None (occurrence: None)
  Receive Date: 20060503
  Receipt Date: 20060412
  Transmission Date: 20061013
  Serious: Yes (Other)
  Sender: FDA-Public Use
  Company Number: JP-AVENTIS-200611237JP

PATIENT
  Age: 64 Year
  Sex: Female

DRUGS (3)
  1. LANTUS [Suspect]
     Route: 058
     Dates: start: 20051101
  2. OPTICLIK (INSULIN INJECTION PEN) [Suspect]
     Route: 003
     Dates: start: 20051101
  3. NOVORAPID [Concomitant]
     Dosage: DOSE: 6-6-5; DOSE UNIT: UNITS
     Route: 003

REACTIONS (4)
  - DEPRESSED LEVEL OF CONSCIOUSNESS [None]
  - HAEMATOCHEZIA [None]
  - HYPERGLYCAEMIA [None]
  - HYPOGLYCAEMIA [None]
